FAERS Safety Report 10610298 (Version 2)
Quarter: 2014Q4

REPORT INFORMATION
  Report Type: Spontaneous
  Country: SE (occurrence: SE)
  Receive Date: 20141126
  Receipt Date: 20141210
  Transmission Date: 20150529
  Serious: Yes (Hospitalization, Other)
  Sender: FDA-Public Use
  Company Number: SE-JNJFOC-20141108186

PATIENT
  Sex: Male

DRUGS (7)
  1. KEPPRA [Suspect]
     Active Substance: LEVETIRACETAM
     Indication: EPILEPSY
     Route: 065
  2. LACTULOSE. [Concomitant]
     Active Substance: LACTULOSE
  3. OLYSIO [Suspect]
     Active Substance: SIMEPREVIR
     Indication: HEPATITIS C VIRUS TEST POSITIVE
     Route: 065
     Dates: start: 20140908, end: 20141007
  4. SOVALDI [Concomitant]
     Active Substance: SOFOSBUVIR
  5. KALEORID [Concomitant]
     Active Substance: POTASSIUM CHLORIDE
  6. METOPROLOL [Concomitant]
     Active Substance: METOPROLOL
  7. ORALOVITE [Concomitant]

REACTIONS (8)
  - Asthenia [Unknown]
  - Anaemia [Unknown]
  - Epilepsy [Unknown]
  - Blood bilirubin increased [Recovering/Resolving]
  - Decreased appetite [Unknown]
  - Blood lactate dehydrogenase increased [Unknown]
  - Dysphagia [Unknown]
  - Aspartate aminotransferase increased [Unknown]

NARRATIVE: CASE EVENT DATE: 201410
